FAERS Safety Report 5798406-1 (Version None)
Quarter: 2008Q3

REPORT INFORMATION
  Report Type: 
  Country: None (occurrence: None)
  Receive Date: 20080701
  Receipt Date: 20080701
  Transmission Date: 20090109
  Serious: No
  Sender: FDA-Public Use
  Company Number: None

PATIENT

DRUGS (2)
  1. ETODOLAC [Suspect]
     Dosage: TABLET
  2. FLOMAX [Suspect]
     Dosage: CAPSULE

REACTIONS (2)
  - DRUG DOSE OMISSION [None]
  - MEDICATION ERROR [None]
